FAERS Safety Report 13681159 (Version 1)
Quarter: 2017Q2

REPORT INFORMATION
  Report Type: Spontaneous
  Country: US (occurrence: US)
  Receive Date: 20170622
  Receipt Date: 20170622
  Transmission Date: 20170830
  Serious: Yes (Hospitalization)
  Sender: FDA-Public Use
  Company Number: None

PATIENT
  Age: 76 Year
  Sex: Female

DRUGS (14)
  1. PANTOPRAZOLE [Concomitant]
     Active Substance: PANTOPRAZOLE
  2. ENBREL [Concomitant]
     Active Substance: ETANERCEPT
  3. ZOLPIDEM [Concomitant]
     Active Substance: ZOLPIDEM\ZOLPIDEM TARTRATE
  4. LASIX [Concomitant]
     Active Substance: FUROSEMIDE
  5. CALCIUM [Concomitant]
     Active Substance: CALCIUM
  6. ASPIRIN. [Concomitant]
     Active Substance: ASPIRIN
  7. XELJANZ [Suspect]
     Active Substance: TOFACITINIB CITRATE
     Indication: RHEUMATOID ARTHRITIS
     Route: 048
     Dates: start: 20170330
  8. KLOR-CON [Concomitant]
     Active Substance: POTASSIUM CHLORIDE
  9. SIMVASTATIN. [Concomitant]
     Active Substance: SIMVASTATIN
  10. MULTIVITAMINS [Concomitant]
     Active Substance: VITAMINS
  11. VIT, D3 [Concomitant]
  12. LOSARTAN/HCT [Concomitant]
     Active Substance: HYDROCHLOROTHIAZIDE\LOSARTAN POTASSIUM
  13. GABAPENTIN. [Concomitant]
     Active Substance: GABAPENTIN
  14. AMARYL [Concomitant]
     Active Substance: GLIMEPIRIDE

REACTIONS (1)
  - Hospitalisation [None]

NARRATIVE: CASE EVENT DATE: 20170521
